FAERS Safety Report 6913447-6 (Version None)
Quarter: 2010Q3

REPORT INFORMATION
  Report Type: 
  Country: None (occurrence: None)
  Receive Date: 20100804
  Receipt Date: 20100804
  Transmission Date: 20110219
  Serious: No
  Sender: FDA-Public Use
  Company Number: None

PATIENT
  Age: 53 Year
  Sex: Female
  Weight: 58.514 kg

DRUGS (1)
  1. RETIN-A [Suspect]
     Dosage: PEA-SIZE AMT AT BEDTIME DAILY DERMA
     Route: 023
     Dates: start: 20090701, end: 20091101

REACTIONS (2)
  - DRUG INEFFECTIVE [None]
  - PRODUCT QUALITY ISSUE [None]
